FAERS Safety Report 6596219-4 (Version None)
Quarter: 2010Q1

REPORT INFORMATION
  Report Type: 
  Country: None (occurrence: None)
  Receive Date: 20100223
  Receipt Date: 20100211
  Transmission Date: 20100710
  Serious: Yes (Hospitalization)
  Sender: FDA-Public Use
  Company Number: US-ROCHE-685064

PATIENT
  Sex: Female
  Weight: 51.7 kg

DRUGS (3)
  1. BEVACIZUMAB [Suspect]
     Indication: BREAST CANCER
     Route: 065
     Dates: start: 20100127
  2. DOXORUBICIN [Suspect]
     Indication: BREAST CANCER
     Dosage: DRUG: ADRIAMYCIN
     Route: 065
     Dates: start: 20100127
  3. CYCLOPHOSPHAMIDE [Suspect]
     Indication: BREAST CANCER
     Dosage: DRUG: CYTOXAN
     Route: 065
     Dates: start: 20100127

REACTIONS (4)
  - DEHYDRATION [None]
  - FAILURE TO THRIVE [None]
  - MUCOSAL INFLAMMATION [None]
  - OESOPHAGITIS [None]
